FAERS Safety Report 18428265 (Version 1)
Quarter: 2020Q4

REPORT INFORMATION
  Report Type: Spontaneous
  Country: US (occurrence: US)
  Receive Date: 20201026
  Receipt Date: 20201026
  Transmission Date: 20210114
  Serious: Yes (Hospitalization)
  Sender: FDA-Public Use
  Company Number: US-AMNEAL PHARMACEUTICALS-2020-AMRX-03333

PATIENT
  Age: 14 Year
  Sex: Female
  Weight: 55 kg

DRUGS (1)
  1. BENZONATATE. [Suspect]
     Active Substance: BENZONATATE
     Indication: PRODUCT USED FOR UNKNOWN INDICATION
     Dosage: 14 CAPSULES, SINGLE (200 MG 14 CAP= 2800 MG)
     Route: 048

REACTIONS (4)
  - Toxicity to various agents [Unknown]
  - Cardiac arrest [Recovered/Resolved]
  - Overdose [Unknown]
  - Torsade de pointes [Recovered/Resolved]
